FAERS Safety Report 6916723-6 (Version None)
Quarter: 2010Q3

REPORT INFORMATION
  Report Type: 
  Country: None (occurrence: None)
  Receive Date: 20100810
  Receipt Date: 20100805
  Transmission Date: 20110219
  Serious: Yes (Death)
  Sender: FDA-Public Use
  Company Number: ES-SANOFI-AVENTIS-2010SA046463

PATIENT
  Age: 74 Year
  Sex: Female

DRUGS (6)
  1. PLAVIX [Suspect]
     Indication: CORONARY ARTERIAL STENT INSERTION
     Route: 048
     Dates: start: 20090101
  2. SINTROM [Interacting]
     Indication: ATRIAL FIBRILLATION
     Route: 048
     Dates: start: 20090101
  3. SEGURIL [Concomitant]
     Indication: HYPERTENSION
     Route: 048
     Dates: start: 20090101
  4. CARDYL [Concomitant]
     Indication: DYSLIPIDAEMIA
     Route: 048
     Dates: start: 20090101
  5. DIGOXIN [Concomitant]
     Indication: CARDIAC FAILURE CONGESTIVE
     Route: 048
     Dates: start: 20090101
  6. METFORMIN HCL [Concomitant]
     Route: 048
     Dates: start: 20090101

REACTIONS (6)
  - APHASIA [None]
  - COAGULOPATHY [None]
  - DRUG INTERACTION [None]
  - HEADACHE [None]
  - INTRAVENTRICULAR HAEMORRHAGE [None]
  - SUBDURAL HAEMATOMA [None]
